FAERS Safety Report 19203369 (Version 2)
Quarter: 2023Q2

REPORT INFORMATION
  Report Type: Spontaneous
  Country: FR (occurrence: FR)
  Receive Date: 20210503
  Receipt Date: 20230612
  Transmission Date: 20230722
  Serious: Yes (Other)
  Sender: FDA-Public Use
  Company Number: None

PATIENT
  Age: 47 Year
  Sex: Male

DRUGS (2)
  1. CYAMEMAZINE [Suspect]
     Active Substance: CYAMEMAZINE
     Dosage: 30 DF, 1X
     Route: 048
     Dates: start: 20210114, end: 20210118
  2. ZOLPIDEM TARTRATE [Suspect]
     Active Substance: ZOLPIDEM TARTRATE
     Indication: Sleep disorder
     Dosage: 14 DF, 1X (7 OR 14 TABLETS ON 18 JANUARY, 4X)
     Route: 048
     Dates: start: 20210114, end: 20210118

REACTIONS (3)
  - Drug dependence [Unknown]
  - Malaise [Recovered/Resolved]
  - Intentional product misuse [Unknown]
